FAERS Safety Report 5077799-7 (Version None)
Quarter: 2006Q3

REPORT INFORMATION
  Report Type: 
  Country: None (occurrence: None)
  Receive Date: 20060810
  Receipt Date: 20060728
  Transmission Date: 20061208
  Serious: Yes (Life-Threatening)
  Sender: FDA-Public Use
  Company Number: JP-MERCK-0608USA00575

PATIENT
  Age: 63 Year
  Sex: Female

DRUGS (7)
  1. FOSAMAX [Suspect]
     Indication: OSTEOPOROSIS
     Route: 048
     Dates: start: 20030719, end: 20060616
  2. ARAVA [Suspect]
     Indication: RHEUMATOID ARTHRITIS
     Route: 048
     Dates: start: 20030913, end: 20040130
  3. ARAVA [Suspect]
     Route: 048
     Dates: start: 20040131, end: 20040603
  4. ARAVA [Suspect]
     Route: 048
     Dates: start: 20040604, end: 20050325
  5. ARAVA [Suspect]
     Route: 048
     Dates: start: 20050326, end: 20060616
  6. TAKEPRON [Concomitant]
     Indication: PROPHYLAXIS
     Route: 048
     Dates: start: 20040508, end: 20051222
  7. PREDONINE [Concomitant]
     Indication: INFLAMMATION
     Route: 048
     Dates: start: 20030719

REACTIONS (3)
  - BLADDER CANCER [None]
  - BLOOD LACTATE DEHYDROGENASE INCREASED [None]
  - TRANSITIONAL CELL CANCER OF THE RENAL PELVIS AND URETER [None]
